FAERS Safety Report 7744799-5 (Version None)
Quarter: 2011Q3

REPORT INFORMATION
  Report Type: 
  Country: None (occurrence: None)
  Receive Date: 20110912
  Receipt Date: 20110912
  Transmission Date: 20111222
  Serious: Yes (Disabling)
  Sender: FDA-Public Use
  Company Number: None

PATIENT
  Age: 53 Year
  Sex: Female
  Weight: 58.967 kg

DRUGS (1)
  1. TOPIRAMATE [Suspect]
     Indication: MIGRAINE
     Dosage: 25 MG
     Route: 048
     Dates: start: 20100103, end: 20110731

REACTIONS (20)
  - MENTAL IMPAIRMENT [None]
  - COGNITIVE DISORDER [None]
  - MIGRAINE [None]
  - PANIC REACTION [None]
  - CARDIAC FLUTTER [None]
  - DYSGEUSIA [None]
  - PARAESTHESIA [None]
  - DISTURBANCE IN ATTENTION [None]
  - ANGER [None]
  - IRRITABILITY [None]
  - HAIR TEXTURE ABNORMAL [None]
  - LETHARGY [None]
  - DECREASED APPETITE [None]
  - ALOPECIA [None]
  - FEELING ABNORMAL [None]
  - APATHY [None]
  - ANXIETY [None]
  - SENSATION OF FOREIGN BODY [None]
  - HAIR DISORDER [None]
  - ASTHENIA [None]
